FAERS Safety Report 8972841 (Version 1)
Quarter: 2012Q4

REPORT INFORMATION
  Report Type: 
  Country: FR (occurrence: FR)
  Receive Date: 20121219
  Receipt Date: 20121219
  Transmission Date: 20130627
  Serious: Yes (Hospitalization)
  Sender: FDA-Public Use
  Company Number: FR-009507513-1212FRA004520

PATIENT
  Weight: 69 kg

DRUGS (1)
  1. VIRAFERONPEG [Suspect]
     Indication: ERDHEIM-CHESTER DISEASE
     Dosage: 150 Microgram, qw
     Route: 058
     Dates: start: 2007, end: 201207

REACTIONS (3)
  - Pulmonary arterial hypertension [Not Recovered/Not Resolved]
  - Dyspnoea [Not Recovered/Not Resolved]
  - Hypothyroidism [Recovered/Resolved]
